FAERS Safety Report 6915429-7 (Version None)
Quarter: 2010Q3

REPORT INFORMATION
  Report Type: 
  Country: None (occurrence: None)
  Receive Date: 20100806
  Receipt Date: 20100806
  Transmission Date: 20110219
  Serious: No
  Sender: FDA-Public Use
  Company Number: None

PATIENT
  Sex: Male
  Weight: 100.3 kg

DRUGS (4)
  1. BEVACIZUMAB (RHUMAB VEGF) [Suspect]
     Dosage: 500 MG
     Dates: end: 20100510
  2. CAMPTOSAR [Suspect]
     Dosage: 790 MG
     Dates: end: 20100510
  3. LEUCOVORIN CALCIUM [Suspect]
     Dosage: 880 MG
     Dates: end: 20100510
  4. FLUOROURACIL [Suspect]
     Dosage: 6130MG
     Dates: end: 20100510

REACTIONS (3)
  - CEREBROVASCULAR ACCIDENT [None]
  - EAR INFECTION [None]
  - LACUNAR INFARCTION [None]
